FAERS Safety Report 13659103 (Version 1)
Quarter: 2017Q2

REPORT INFORMATION
  Report Type: Report from Study
  Country: US (occurrence: US)
  Receive Date: 20170616
  Receipt Date: 20170616
  Transmission Date: 20170830
  Serious: Yes (Death, Other)
  Sender: FDA-Public Use
  Company Number: US-ASTRAZENECA-2016SF14062

PATIENT
  Age: 740 Month
  Sex: Female

DRUGS (2)
  1. LYNPARZA [Suspect]
     Active Substance: OLAPARIB
     Indication: OVARIAN CANCER
     Route: 048
  2. LYNPARZA [Suspect]
     Active Substance: OLAPARIB
     Indication: OVARIAN CANCER
     Route: 048
     Dates: start: 20161007

REACTIONS (13)
  - Decreased appetite [Not Recovered/Not Resolved]
  - Joint swelling [Recovering/Resolving]
  - Malignant neoplasm progression [Not Recovered/Not Resolved]
  - Dyspnoea exertional [Not Recovered/Not Resolved]
  - Dysphagia [Unknown]
  - Constipation [Not Recovered/Not Resolved]
  - Pleural effusion [Unknown]
  - Carbohydrate antigen 125 increased [Unknown]
  - Fatigue [Not Recovered/Not Resolved]
  - Death [Fatal]
  - Tumour marker increased [Unknown]
  - Anxiety [Not Recovered/Not Resolved]
  - Neuropathy peripheral [Unknown]

NARRATIVE: CASE EVENT DATE: 201702
